FAERS Safety Report 7033195-4 (Version None)
Quarter: 2010Q4

REPORT INFORMATION
  Report Type: 
  Country: None (occurrence: None)
  Receive Date: 20101007
  Receipt Date: 20100930
  Transmission Date: 20110411
  Serious: Yes (Other)
  Sender: FDA-Public Use
  Company Number: JP-MERCK-1004USA04200

PATIENT
  Age: 69 Year
  Sex: Female

DRUGS (6)
  1. FOSAMAX [Suspect]
     Indication: OSTEOPOROSIS
     Route: 048
     Dates: start: 20100413, end: 20100420
  2. FOSAMAX [Suspect]
     Indication: BONE DENSITY DECREASED
     Route: 048
     Dates: start: 20100413, end: 20100420
  3. NIFELAT [Concomitant]
     Indication: HYPERTENSION
     Route: 048
  4. PRAVAMATE [Concomitant]
     Indication: HYPERLIPIDAEMIA
     Route: 048
     Dates: start: 20070401
  5. ASPIRIN [Concomitant]
     Indication: ANGIOPATHY
     Route: 048
     Dates: start: 20060701
  6. ALFASULY [Concomitant]
     Indication: OSTEOPOROSIS
     Route: 048
     Dates: start: 20100409

REACTIONS (1)
  - PAIN [None]
